FAERS Safety Report 16624296 (Version 1)
Quarter: 2019Q3

REPORT INFORMATION
  Report Type: Spontaneous
  Country: FR (occurrence: FR)
  Receive Date: 20190724
  Receipt Date: 20190724
  Transmission Date: 20191004
  Serious: Yes (Hospitalization)
  Sender: FDA-Public Use
  Company Number: FR-ACCORD-143454

PATIENT
  Age: 39 Year
  Sex: Female

DRUGS (3)
  1. METHADONE [Interacting]
     Active Substance: METHADONE HYDROCHLORIDE
     Indication: DRUG ABUSE
     Route: 048
     Dates: end: 20190613
  2. SERESTA [Concomitant]
     Active Substance: OXAZEPAM
     Indication: ALCOHOL ABUSE
     Dosage: STRENGTH: 50 MG
     Route: 048
  3. NALTREXONE/NALTREXONE HYDROCHLORIDE [Suspect]
     Active Substance: NALTREXONE
     Indication: ALCOHOL ABUSE
     Route: 048
     Dates: start: 20190611, end: 20190613

REACTIONS (8)
  - Pneumonia aspiration [Recovered/Resolved]
  - Inhibitory drug interaction [Unknown]
  - Diarrhoea [Recovered/Resolved]
  - Drug abuse [Unknown]
  - Acute kidney injury [Recovered/Resolved]
  - Vomiting [Recovered/Resolved]
  - Respiratory distress [Recovered/Resolved]
  - Drug withdrawal syndrome [Recovered/Resolved]

NARRATIVE: CASE EVENT DATE: 20190613
